FAERS Safety Report 20237902 (Version 1)
Quarter: 2021Q4

REPORT INFORMATION
  Report Type: Other
  Country: KR (occurrence: None)
  Receive Date: 20211228
  Receipt Date: 20211228
  Transmission Date: 20220304
  Serious: Yes (Death)
  Sender: FDA-Public Use
  Company Number: KR-ROCHE-2982962

PATIENT
  Age: 63 Year
  Sex: Male
  Weight: 66 kg

DRUGS (1)
  1. ATEZOLIZUMAB [Suspect]
     Active Substance: ATEZOLIZUMAB
     Indication: Metastases to peritoneum
     Route: 041
     Dates: start: 20211208, end: 20211208

REACTIONS (2)
  - Rash erythematous [Recovering/Resolving]
  - Disease progression [Fatal]

NARRATIVE: CASE EVENT DATE: 20211212
